FAERS Safety Report 9759925 (Version 1)
Quarter: 2013Q4

REPORT INFORMATION
  Report Type: Spontaneous
  Country: US (occurrence: US)
  Receive Date: 20131216
  Receipt Date: 20131216
  Transmission Date: 20140711
  Serious: Yes (Other)
  Sender: FDA-Public Use
  Company Number: US-SA-2013SA130368

PATIENT
  Age: 70 Year
  Sex: Female

DRUGS (3)
  1. MULTAQ [Suspect]
     Indication: ATRIAL FIBRILLATION
     Route: 065
     Dates: start: 20131023
  2. MULTAQ [Suspect]
     Indication: ATRIAL FIBRILLATION
     Route: 065
  3. REGADENOSON [Suspect]
     Route: 065

REACTIONS (1)
  - Atrioventricular block [Recovered/Resolved]
